FAERS Safety Report 8594295-0 (Version None)
Quarter: 2012Q3

REPORT INFORMATION
  Report Type: 
  Country: None (occurrence: None)
  Receive Date: 20120815
  Receipt Date: 20120809
  Transmission Date: 20120928
  Serious: Yes (Hospitalization, Other)
  Sender: FDA-Public Use
  Company Number: US-BIOGENIDEC-2012BI028313

PATIENT
  Age: 42 Year
  Sex: Female

DRUGS (16)
  1. AMBIEN [Concomitant]
     Route: 048
  2. GABAPENTIN [Concomitant]
     Route: 048
  3. CORTEF [Concomitant]
     Route: 048
  4. BACLOFEN [Concomitant]
     Route: 048
  5. TOPAMAX [Concomitant]
  6. VITAMIN D [Concomitant]
  7. FLOMAX [Concomitant]
  8. XANAX [Concomitant]
     Route: 048
  9. ORTHO-EST [Concomitant]
  10. PROTONIX [Concomitant]
  11. TOPAMAX [Concomitant]
  12. CYMBALTA [Concomitant]
  13. LEVOTHYROXINE SODIUM [Concomitant]
  14. TYSABRI [Suspect]
     Indication: MULTIPLE SCLEROSIS
     Route: 042
     Dates: start: 20080721, end: 20100618
  15. ZANAFLEX [Concomitant]
     Route: 048
  16. KEPPRA [Concomitant]
     Route: 048

REACTIONS (4)
  - METABOLIC ENCEPHALOPATHY [None]
  - HERPES VIRUS INFECTION [None]
  - PROGRESSIVE MULTIFOCAL LEUKOENCEPHALOPATHY [None]
  - THROMBOCYTOPENIA [None]
